FAERS Safety Report 17267246 (Version 1)
Quarter: 2020Q1

REPORT INFORMATION
  Report Type: Spontaneous
  Country: CA (occurrence: CA)
  Receive Date: 20200114
  Receipt Date: 20200114
  Transmission Date: 20200409
  Serious: Yes (Other)
  Sender: FDA-Public Use
  Company Number: CA-BAXTER-2020BAX000400

PATIENT
  Age: 18 Month
  Sex: Male

DRUGS (10)
  1. TOPOTECAN [Suspect]
     Active Substance: TOPOTECAN HYDROCHLORIDE
     Indication: NEUROBLASTOMA
     Dosage: 1 TO 2 CYCLES OF CHEMOTHERAPY
     Route: 065
  2. PROCYTOX (CYCLOPHOSPHAMIDE) 2000MG/VIAL [Suspect]
     Active Substance: CYCLOPHOSPHAMIDE
     Indication: NEUROBLASTOMA
     Dosage: 1 TO 4 CYCLES OF CHEMOTHERAPY, INTERMEDIATE RISK NEUROBLASTOMA TREATMENT
     Route: 065
  3. TOPOTECAN [Suspect]
     Active Substance: TOPOTECAN HYDROCHLORIDE
     Indication: METASTATIC NEOPLASM
  4. DOXIL [Suspect]
     Active Substance: DOXORUBICIN HYDROCHLORIDE
     Indication: NEUROBLASTOMA
     Dosage: 1 TO 4 CYCLES OF CHEMOTHERAPY, INTERMEDIATE RISK NEUROBLASTOMA TREATMENT
     Route: 065
  5. CARBOPLATIN. [Suspect]
     Active Substance: CARBOPLATIN
     Indication: METASTATIC NEOPLASM
  6. ETOPOSIDE. [Suspect]
     Active Substance: ETOPOSIDE
     Indication: NEUROBLASTOMA
     Dosage: 1 TO 4 CYCLES OF CHEMOTHERAPY, INTERMEDIATE RISK NEUROBLASTOMA TREATMENT
     Route: 065
  7. DOXIL [Suspect]
     Active Substance: DOXORUBICIN HYDROCHLORIDE
     Indication: METASTATIC NEOPLASM
  8. ETOPOSIDE. [Suspect]
     Active Substance: ETOPOSIDE
     Indication: METASTATIC NEOPLASM
  9. PROCYTOX (CYCLOPHOSPHAMIDE) 2000MG/VIAL [Suspect]
     Active Substance: CYCLOPHOSPHAMIDE
     Indication: METASTATIC NEOPLASM
     Dosage: 1 TO 2 CYCLES OF CHEMOTHERAPY
     Route: 065
  10. CARBOPLATIN. [Suspect]
     Active Substance: CARBOPLATIN
     Indication: NEUROBLASTOMA
     Dosage: 1 TO 4 CYCLES OF CHEMOTHERAPY, INTERMEDIATE RISK NEUROBLASTOMA TREATMENT
     Route: 065

REACTIONS (4)
  - Neuroblastoma [Unknown]
  - Anaplastic lymphoma kinase gene mutation [Unknown]
  - Therapy non-responder [Unknown]
  - Metastases to bone [Unknown]
